FAERS Safety Report 21902229 (Version 1)
Quarter: 2023Q1

REPORT INFORMATION
  Report Type: Other
  Country: US (occurrence: None)
  Receive Date: 20230124
  Receipt Date: 20230124
  Transmission Date: 20230418
  Serious: Yes (Hospitalization)
  Sender: FDA-Public Use
  Company Number: US-ROCHE-2736379

PATIENT
  Age: 54 Year
  Sex: Female
  Weight: 49.940 kg

DRUGS (14)
  1. OCREVUS [Suspect]
     Active Substance: OCRELIZUMAB
     Indication: Relapsing multiple sclerosis
     Dosage: REPORTS TAKING MEDICATIONS TWICE PER YEAR
     Route: 042
     Dates: start: 201701
  2. OCREVUS [Suspect]
     Active Substance: OCRELIZUMAB
     Indication: Multiple sclerosis
     Route: 042
  3. VALIUM [Suspect]
     Active Substance: DIAZEPAM
     Indication: Multiple sclerosis
     Dosage: REPORTS TO TAKE ONE AT NIGHT
     Route: 065
     Dates: end: 2020
  4. VALIUM [Suspect]
     Active Substance: DIAZEPAM
     Indication: Muscle spasms
     Route: 065
  5. VALIUM [Suspect]
     Active Substance: DIAZEPAM
     Indication: Tremor
     Dosage: ONCE AT NIGHT, PT BREAKS A 5 MG CAPSULE IN HALF AND TAKES IT WITH A 5?MG FOR A TOTAL DOSE OF 7.5 MG
     Route: 065
     Dates: start: 2020
  6. BIOTIN [Concomitant]
     Active Substance: BIOTIN
     Dosage: ONGOING YES
     Route: 048
  7. PANTOPRAZOLE [Concomitant]
     Active Substance: PANTOPRAZOLE
     Dosage: ONGOING YES
     Route: 048
  8. IRBESARTAN [Concomitant]
     Active Substance: IRBESARTAN
     Dosage: ONGOING YES
     Route: 048
  9. FUROSEMIDE [Concomitant]
     Active Substance: FUROSEMIDE
     Route: 048
  10. METOPROLOL [Concomitant]
     Active Substance: METOPROLOL
     Route: 048
  11. ASPIRIN [Concomitant]
     Active Substance: ASPIRIN
     Route: 048
  12. MELATONIN [Concomitant]
     Active Substance: MELATONIN
     Dosage: TAKES TWO 10 MG AT NIGHT ;ONGOING: YES
     Route: 048
  13. VITAMIN D3 [Concomitant]
     Active Substance: CHOLECALCIFEROL
     Indication: Multiple sclerosis
     Dosage: ONGOING YES
     Route: 048
  14. ARMODAFINIL [Concomitant]
     Active Substance: ARMODAFINIL
     Route: 065

REACTIONS (5)
  - Asthenia [Not Recovered/Not Resolved]
  - Off label use [Unknown]
  - COVID-19 [Recovered/Resolved]
  - Fall [Unknown]
  - Tremor [Not Recovered/Not Resolved]

NARRATIVE: CASE EVENT DATE: 20200101
